FAERS Safety Report 7894146-3 (Version None)
Quarter: 2011Q4

REPORT INFORMATION
  Report Type: 
  Country: None (occurrence: None)
  Receive Date: 20111104
  Receipt Date: 20111026
  Transmission Date: 20120403
  Serious: No
  Sender: FDA-Public Use
  Company Number: US-PFIZER INC-2011261613

PATIENT
  Sex: Female

DRUGS (3)
  1. LEVOTHYROXINE [Concomitant]
     Dosage: UNK
  2. CARVEDILOL [Concomitant]
     Dosage: UNK
  3. AMLODIPINE BESYLATE [Suspect]
     Dosage: UNK

REACTIONS (2)
  - SOMNOLENCE [None]
  - CONSTIPATION [None]
